FAERS Safety Report 8113541-0 (Version None)
Quarter: 2012Q1

REPORT INFORMATION
  Report Type: 
  Country: None (occurrence: None)
  Receive Date: 20120203
  Receipt Date: 20120126
  Transmission Date: 20120608
  Serious: Yes (Life-Threatening, Hospitalization, Other)
  Sender: FDA-Public Use
  Company Number: US-ABBOTT-11P-163-0885978-01

PATIENT
  Sex: Female
  Weight: 129.84 kg

DRUGS (12)
  1. ASPIRIN [Concomitant]
     Indication: SPONDYLITIS
     Dates: start: 20110702, end: 20111220
  2. HUMIRA [Suspect]
     Route: 058
     Dates: start: 20120111
  3. LASIX [Concomitant]
     Indication: FLUID RETENTION
     Dates: start: 20080101, end: 20100507
  4. NAPROXEN (ALEVE) [Concomitant]
     Indication: SPONDYLITIS
     Dates: start: 20080101, end: 20111220
  5. CALCIUM MAGNESIUM ZINC [Concomitant]
     Indication: MINERAL SUPPLEMENTATION
     Dosage: 1000/400/15
     Dates: start: 20110702, end: 20111220
  6. ZOLOFT [Concomitant]
     Indication: ANXIETY
     Dates: start: 20110722, end: 20110728
  7. ZOLOFT [Concomitant]
     Dates: start: 20110729
  8. NUVARING [Concomitant]
     Indication: CONTRACEPTION
     Dates: start: 20100916, end: 20111221
  9. MULTI-VITAMIN [Concomitant]
     Indication: VITAMIN SUPPLEMENTATION
     Dates: start: 20100916, end: 20111220
  10. HUMIRA [Suspect]
     Indication: SPONDYLITIS
     Route: 058
     Dates: start: 20100331, end: 20111207
  11. LASIX [Concomitant]
     Dates: start: 20100910, end: 20111220
  12. VITAMIN D [Concomitant]
     Indication: VITAMIN D DEFICIENCY
     Dates: start: 20110103, end: 20111220

REACTIONS (1)
  - PULMONARY EMBOLISM [None]
